FAERS Safety Report 9241939 (Version 2)
Quarter: 2013Q2

REPORT INFORMATION
  Report Type: Report from Study
  Country: US (occurrence: US)
  Receive Date: 20130419
  Receipt Date: 20130429
  Transmission Date: 20140414
  Serious: Yes (Hospitalization)
  Sender: FDA-Public Use
  Company Number: US-ACTELION-A-US2012-60559

PATIENT
  Age: 63 Year
  Sex: Male

DRUGS (2)
  1. TRACLEER [Suspect]
     Indication: PULMONARY ARTERIAL HYPERTENSION
     Dosage: UNK
     Route: 048
  2. COUMADIN [Concomitant]

REACTIONS (7)
  - Rectal haemorrhage [Unknown]
  - Heart rate irregular [Unknown]
  - Drug dose omission [Unknown]
  - Heart rate increased [Unknown]
  - Nervousness [Unknown]
  - Renal disorder [Unknown]
  - Asthenia [Unknown]
